FAERS Safety Report 14449700 (Version 1)
Quarter: 2018Q1

REPORT INFORMATION
  Report Type: Report from Study
  Country: BR (occurrence: BR)
  Receive Date: 20180128
  Receipt Date: 20180128
  Transmission Date: 20180509
  Serious: Yes (Life-Threatening, Other)
  Sender: FDA-Public Use
  Company Number: PHHY2018BR012263

PATIENT
  Sex: Female
  Weight: 68 kg

DRUGS (5)
  1. FORASEQ [Suspect]
     Active Substance: BUDESONIDE\FORMOTEROL FUMARATE
     Indication: PRODUCT USED FOR UNKNOWN INDICATION
     Route: 065
  2. ULTIBRO BREEZHALER [Suspect]
     Active Substance: GLYCOPYRRONIUM\INDACATEROL
     Indication: BRONCHITIS
     Route: 055
  3. AEROCORT [Concomitant]
     Indication: PRODUCT USED FOR UNKNOWN INDICATION
     Route: 065
  4. AEROLIN [Concomitant]
     Active Substance: ALBUTEROL
     Indication: PRODUCT USED FOR UNKNOWN INDICATION
     Route: 065
  5. ALENIA [Concomitant]
     Active Substance: BUDESONIDE\FORMOTEROL FUMARATE
     Indication: PRODUCT USED FOR UNKNOWN INDICATION
     Route: 065

REACTIONS (18)
  - Dyspnoea [Unknown]
  - Nicotine dependence [Unknown]
  - Weight increased [Unknown]
  - Fatigue [Unknown]
  - Dependence [Unknown]
  - Depression [Recovering/Resolving]
  - Eating disorder [Unknown]
  - Asthenia [Unknown]
  - Crying [Recovering/Resolving]
  - Pain in extremity [Unknown]
  - Bronchitis [Unknown]
  - Nervousness [Unknown]
  - Drug ineffective [Unknown]
  - Inappropriate schedule of drug administration [Not Recovered/Not Resolved]
  - Feeling of despair [Unknown]
  - Malaise [Unknown]
  - Condition aggravated [Unknown]
  - Myocardial infarction [Unknown]

NARRATIVE: CASE EVENT DATE: 2015
